FAERS Safety Report 18111252 (Version 3)
Quarter: 2020Q4

REPORT INFORMATION
  Report Type: Spontaneous
  Country: US (occurrence: US)
  Receive Date: 20200805
  Receipt Date: 20201008
  Transmission Date: 20210113
  Serious: Yes (Life-Threatening, Other)
  Sender: FDA-Public Use
  Company Number: US-BIOGEN-2020BI00905042

PATIENT
  Sex: Female

DRUGS (1)
  1. TYSABRI [Suspect]
     Active Substance: NATALIZUMAB
     Indication: MULTIPLE SCLEROSIS
     Dosage: INFUSED OVER 1 HOUR
     Route: 042
     Dates: start: 20061107, end: 20190626

REACTIONS (2)
  - Haematological malignancy [Not Recovered/Not Resolved]
  - Deafness [Unknown]

NARRATIVE: CASE EVENT DATE: 2019
